FAERS Safety Report 5632616-9 (Version None)
Quarter: 2008Q1

REPORT INFORMATION
  Report Type: 
  Country: None (occurrence: None)
  Receive Date: 20080131
  Receipt Date: 20071005
  Transmission Date: 20080703
  Serious: No
  Sender: FDA-Public Use
  Company Number: 163-21880-07100394

PATIENT
  Age: 80 Year
  Sex: Female

DRUGS (3)
  1. REVLIMID [Suspect]
     Indication: MULTIPLE MYELOMA
     Dosage: 5-15, 10, 5 MG, DAILY, ORAL
     Route: 048
     Dates: start: 20060825, end: 20070601
  2. REVLIMID [Suspect]
     Indication: MULTIPLE MYELOMA
     Dosage: 5-15, 10, 5 MG, DAILY, ORAL
     Route: 048
     Dates: start: 20070703, end: 20071001
  3. REVLIMID [Suspect]
     Indication: MULTIPLE MYELOMA
     Dosage: 5-15, 10, 5 MG, DAILY, ORAL
     Route: 048
     Dates: start: 20071009, end: 20071001

REACTIONS (1)
  - LABORATORY TEST ABNORMAL [None]
